FAERS Safety Report 5032656-7 (Version None)
Quarter: 2006Q2

REPORT INFORMATION
  Report Type: 
  Country: None (occurrence: None)
  Receive Date: 20060622
  Receipt Date: 20060525
  Transmission Date: 20061013
  Serious: Yes (Disabling)
  Sender: FDA-Public Use
  Company Number: GB-BRISTOL-MYERS SQUIBB COMPANY-13390349

PATIENT
  Age: 75 Year
  Sex: Male
  Weight: 89 kg

DRUGS (6)
  1. LIPOSTAT TABS [Suspect]
     Indication: CORONARY ARTERY DISEASE
     Route: 048
     Dates: end: 20060601
  2. ATENOLOL [Concomitant]
     Route: 048
  3. NAPROSYN [Concomitant]
     Route: 048
  4. IRBESARTAN [Concomitant]
     Route: 048
  5. ASPIRIN [Concomitant]
     Route: 048
  6. TERAZOSIN HCL [Concomitant]
     Route: 048

REACTIONS (6)
  - BLOOD CREATINE PHOSPHOKINASE INCREASED [None]
  - HEADACHE [None]
  - MUSCLE ATROPHY [None]
  - MUSCLE CONTRACTIONS INVOLUNTARY [None]
  - MUSCLE TWITCHING [None]
  - MYOKYMIA [None]
